FAERS Safety Report 12172718 (Version 1)
Quarter: 2016Q1

REPORT INFORMATION
  Report Type: Spontaneous
  Country: DE (occurrence: DE)
  Receive Date: 20160311
  Receipt Date: 20160311
  Transmission Date: 20160526
  Serious: Yes (Disabling)
  Sender: FDA-Public Use
  Company Number: DE-ELI_LILLY_AND_COMPANY-DE201603000621

PATIENT
  Age: 69 Year
  Sex: Male
  Weight: 105 kg

DRUGS (8)
  1. SIMVASTATIN. [Concomitant]
     Active Substance: SIMVASTATIN
     Indication: TYPE V HYPERLIPIDAEMIA
     Dosage: UNK, EACH EVENING (REPORTED AS: 0-0-1)
     Route: 048
  2. ASPIRIN. [Concomitant]
     Active Substance: ASPIRIN
     Indication: CORONARY ARTERY DISEASE
     Dosage: 100 MG, EACH MORNING (1-0-0)
     Route: 048
  3. LEVEMIR [Concomitant]
     Active Substance: INSULIN DETEMIR
     Dosage: UNK, OTHER (0-0-0-14 IE)
     Route: 058
  4. ENALAPRIL [Concomitant]
     Active Substance: ENALAPRIL
     Dosage: 5 MG, EACH EVENING (REPORTED AS: 1/2-0-1/2)
     Route: 048
  5. HUMALOG [Concomitant]
     Active Substance: INSULIN LISPRO
     Indication: TYPE 2 DIABETES MELLITUS
     Dosage: UNK, OTHER (25 IE - 10 IE - 18 IE)
     Route: 058
  6. TRULICITY [Suspect]
     Active Substance: DULAGLUTIDE
     Indication: TYPE 2 DIABETES MELLITUS
     Dosage: 1.5 MG, WEEKLY (1/W)
     Route: 058
     Dates: start: 201508
  7. ENALAPRIL [Concomitant]
     Active Substance: ENALAPRIL
     Indication: HYPERTENSION
     Dosage: 5 MG, EACH MORNING (REPORTED AS: 1/2-0-1/2)
     Route: 048
  8. BISOPROLOL [Concomitant]
     Active Substance: BISOPROLOL
     Indication: ESSENTIAL HYPERTENSION
     Dosage: 10 MG, EACH MORNING (1-0-0)
     Route: 048

REACTIONS (1)
  - Erectile dysfunction [Unknown]

NARRATIVE: CASE EVENT DATE: 201509
